FAERS Safety Report 5368157-6 (Version None)
Quarter: 2007Q2

REPORT INFORMATION
  Report Type: 
  Country: None (occurrence: None)
  Receive Date: 20070625
  Receipt Date: 20070615
  Transmission Date: 20071010
  Serious: Yes (Other)
  Sender: FDA-Public Use
  Company Number: PHEH2007US08867

PATIENT
  Age: 79 Year
  Sex: Female

DRUGS (2)
  1. EXJADE [Suspect]
     Indication: BONE MARROW DISORDER
     Dosage: 1000 MG, QD
     Route: 048
     Dates: start: 20070524, end: 20070528
  2. TRANQUILIZER [Concomitant]
     Dates: end: 20070528

REACTIONS (1)
  - COMA [None]
